FAERS Safety Report 14657256 (Version 2)
Quarter: 2018Q2

REPORT INFORMATION
  Report Type: Spontaneous
  Country: CA (occurrence: CA)
  Receive Date: 20180319
  Receipt Date: 20180424
  Transmission Date: 20180711
  Serious: Yes (Other)
  Sender: FDA-Public Use
  Company Number: CA-PFIZER INC-2017266344

PATIENT
  Age: 63 Year
  Sex: Male

DRUGS (17)
  1. SUTENT [Suspect]
     Active Substance: SUNITINIB MALATE
     Dosage: 50 MG, 1X/DAY, 2WEEKS ON, 2 WEEKS OFF FOR 3 CYCLES
     Route: 048
  2. TELMISARTAN. [Concomitant]
     Active Substance: TELMISARTAN
     Dosage: 80 MG, UNK
  3. SUTENT [Suspect]
     Active Substance: SUNITINIB MALATE
     Dosage: 25 MG, 1X/DAY, 1 WEEKK ON, 2 WEEKS OFF.
     Route: 048
  4. VITAMIN D /00107901/ [Concomitant]
     Active Substance: ERGOCALCIFEROL
     Dosage: 1000 IU, UNK
  5. ATORVASTATIN [Concomitant]
     Active Substance: ATORVASTATIN
     Dosage: 40 MG, UNK
  6. TETRA /00001702/ [Concomitant]
     Dosage: 40 MG, UNK
  7. SUTENT [Suspect]
     Active Substance: SUNITINIB MALATE
     Dosage: 25 MG, CYCLIC (1 WEEK ON AND 2 WEEKS OFF)
     Route: 048
  8. VITAMIN B12 [Concomitant]
     Active Substance: CYANOCOBALAMIN
     Dosage: 250 MG, UNK
  9. VITAMIN B COMPLEX /00003501/ [Concomitant]
     Active Substance: CALCIUM PANTOTHENATE\NIACINAMIDE\PYRIDOXINE HYDROCHLORIDE\RIBOFLAVIN\THIAMINE HYDROCHLORIDE
     Dosage: 50 MG, UNK
  10. SELENIUM /00075010/ [Concomitant]
     Dosage: 100 UG, UNK
  11. HYDROCHLOORTHIAZIDE [Concomitant]
     Active Substance: HYDROCHLOROTHIAZIDE
     Dosage: 12.5 MG, UNK
  12. WARFARIN [Concomitant]
     Active Substance: WARFARIN
     Dosage: 3 MG, UNK
  13. REACTIN /00372302/ [Concomitant]
     Dosage: 10-20 MG, 1X/DAY AS NEEDED
  14. OMEGA 3 DHA /06822501/ [Concomitant]
     Dosage: 120 DHA
  15. MAGNESIUM /00123201/ [Concomitant]
     Dosage: 500 MG, UNK
  16. ELTROXIN LF [Concomitant]
     Dosage: 50 MG, UNK
  17. TYLENOL EXTRA STRENGTH [Concomitant]
     Active Substance: ACETAMINOPHEN
     Dosage: UNK, AS NEEDED

REACTIONS (6)
  - Nausea [Unknown]
  - Hernia [Unknown]
  - Mouth injury [Unknown]
  - Diarrhoea [Unknown]
  - Malaise [Unknown]
  - Neoplasm progression [Unknown]
